FAERS Safety Report 16783490 (Version 1)
Quarter: 2019Q3

REPORT INFORMATION
  Report Type: Spontaneous
  Country: NO (occurrence: NO)
  Receive Date: 20190907
  Receipt Date: 20190907
  Transmission Date: 20191005
  Serious: Yes (Hospitalization)
  Sender: FDA-Public Use
  Company Number: NO-ACCORD-153992

PATIENT
  Age: 44 Year
  Sex: Female

DRUGS (7)
  1. BENEPALI [Suspect]
     Active Substance: ETANERCEPT
     Indication: RHEUMATOID ARTHRITIS
     Route: 058
     Dates: start: 201702, end: 201904
  2. VAGIFEM [Concomitant]
     Active Substance: ESTRADIOL
     Dosage: INITIALLY 10 MICROGRAM DAILY FOR 14 DAYS, THEN 10 MICROGRAM TWICE PER WEEK.
     Route: 067
  3. OMEPRAZOLE. [Concomitant]
     Active Substance: OMEPRAZOLE
     Indication: PROPHYLAXIS AGAINST GASTROINTESTINAL ULCER
     Route: 048
  4. METHOTREXATE. [Suspect]
     Active Substance: METHOTREXATE
     Indication: RHEUMATOID ARTHRITIS
     Dosage: INITIALLY 12,5 MG X 1 PER WEEK, INCREASED TO 20 MG X 1 AFTER BENEPALI WAS?WITHDRAWN.
     Route: 048
     Dates: start: 2010
  5. FOLSYRE NAF [Concomitant]
     Active Substance: FOLIC ACID
     Route: 048
     Dates: start: 2010
  6. PARACETAMOL [Concomitant]
     Active Substance: ACETAMINOPHEN
     Indication: RHEUMATOID ARTHRITIS
     Dosage: 1 GRAM UP TO THREE TIMES PER DAY
     Route: 048
  7. IBUX [Concomitant]
     Active Substance: IBUPROFEN
     Indication: RHEUMATOID ARTHRITIS
     Route: 048
     Dates: end: 2019

REACTIONS (1)
  - Soft tissue sarcoma [Recovering/Resolving]

NARRATIVE: CASE EVENT DATE: 2019
